FAERS Safety Report 8897898 (Version 2)
Quarter: 2013Q3

REPORT INFORMATION
  Report Type: Spontaneous
  Country: DE (occurrence: DE)
  Receive Date: 20121109
  Receipt Date: 20130819
  Transmission Date: 20140515
  Serious: Yes (Other)
  Sender: FDA-Public Use
  Company Number: DE-ELI_LILLY_AND_COMPANY-DE201211001437

PATIENT
  Age: 70 Year
  Sex: Male

DRUGS (4)
  1. CIALIS [Suspect]
     Indication: ERECTILE DYSFUNCTION
     Dosage: 5 MG, QD
     Route: 048
     Dates: start: 2010
  2. DIURETICS [Concomitant]
     Dosage: 1 DF, UNKNOWN
  3. BETA BLOCKING AGENTS [Concomitant]
     Dosage: 1 DF, UNKNOWN
  4. ANTIDEPRESSANTS [Concomitant]
     Dosage: 1 DF, UNKNOWN

REACTIONS (1)
  - Retinal detachment [Recovered/Resolved]
